FAERS Safety Report 19632939 (Version 1)
Quarter: 2021Q3

REPORT INFORMATION
  Report Type: Spontaneous
  Country: SE (occurrence: SE)
  Receive Date: 20210730
  Receipt Date: 20210730
  Transmission Date: 20211014
  Serious: Yes (Hospitalization)
  Sender: FDA-Public Use
  Company Number: SE-ORGANON-O2107SWE001920

PATIENT
  Age: 69 Year
  Sex: Male

DRUGS (4)
  1. BICALUTAMIDE. [Concomitant]
     Active Substance: BICALUTAMIDE
     Dosage: UNK; (ALSO REPORTED AS 150 MG 1 X 1)
  2. ALLOPURINOL. [Concomitant]
     Active Substance: ALLOPURINOL
     Dosage: UNK; (REPORTED AS: 100 MG 2 X 1)
  3. TROMBYL [Concomitant]
     Active Substance: ASPIRIN
     Dosage: UNK (REPORTED AS: 75 MG 1 X 1)
  4. SIMVASTATIN. [Suspect]
     Active Substance: SIMVASTATIN
     Dosage: 40MG ONCE DAILY, RECENTLY INCREASED TO 80MG ONCE DAILY (DATE UNKNOWN)
     Dates: end: 20210620

REACTIONS (2)
  - Acute kidney injury [Not Recovered/Not Resolved]
  - Rhabdomyolysis [Not Recovered/Not Resolved]

NARRATIVE: CASE EVENT DATE: 20210620
